FAERS Safety Report 5605674-5 (Version None)
Quarter: 2008Q1

REPORT INFORMATION
  Report Type: 
  Country: None (occurrence: None)
  Receive Date: 20080123
  Receipt Date: 20080123
  Transmission Date: 20080703
  Serious: Yes (Other)
  Sender: FDA-Public Use
  Company Number: None

PATIENT
  Age: 51 Year
  Sex: Female
  Weight: 69.8539 kg

DRUGS (1)
  1. NEXIUM [Suspect]
     Indication: BARRETT'S OESOPHAGUS
     Dosage: 40MG  1 PER DAY  PO (DURATION: OVER A YEAR 2 MONTHS AT A TIME)
     Route: 048

REACTIONS (2)
  - ANGER [None]
  - DEPRESSION [None]
